FAERS Safety Report 6524935-9 (Version None)
Quarter: 2010Q1

REPORT INFORMATION
  Report Type: 
  Country: None (occurrence: None)
  Receive Date: 20100104
  Receipt Date: 20091221
  Transmission Date: 20100710
  Serious: Yes (Other)
  Sender: FDA-Public Use
  Company Number: CN-PFIZER INC-2009312239

PATIENT
  Age: 40 Year
  Sex: Male

DRUGS (1)
  1. CARDURA [Suspect]
     Indication: PROSTATITIS
     Dosage: UNK

REACTIONS (1)
  - NEURITIS CRANIAL [None]
